FAERS Safety Report 11947795 (Version 3)
Quarter: 2016Q1

REPORT INFORMATION
  Report Type: Report from Study
  Country: JP (occurrence: JP)
  Receive Date: 20160125
  Receipt Date: 20160304
  Transmission Date: 20160526
  Serious: Yes (Death)
  Sender: FDA-Public Use
  Company Number: JP-TAKEDA-2016TUS001242

PATIENT
  Age: 82 Year
  Sex: Female
  Weight: 40.3 kg

DRUGS (4)
  1. FAMOTIDINE OD [Concomitant]
     Active Substance: FAMOTIDINE
     Indication: CHRONIC GASTRITIS
     Dosage: 10 MG, BID
     Route: 048
     Dates: start: 20131204, end: 20150515
  2. FEBUXOSTAT. [Suspect]
     Active Substance: FEBUXOSTAT
     Indication: HYPERURICAEMIA
     Dosage: 10 MG, QD
     Route: 048
     Dates: start: 20130315, end: 20150515
  3. AIMIX [Concomitant]
     Active Substance: AMLODIPINE BESYLATE\IRBESARTAN
     Indication: HYPERTENSION
     Dosage: 1 DF, QD
     Route: 048
     Dates: start: 20150114, end: 20150515
  4. THYRADIN S [Concomitant]
     Active Substance: LEVOTHYROXINE SODIUM
     Indication: HYPOTHYROIDISM
     Dosage: 50 ?G, QD
     Route: 048
     Dates: start: 20041101, end: 20150515

REACTIONS (1)
  - Condition aggravated [Fatal]

NARRATIVE: CASE EVENT DATE: 20150520
